FAERS Safety Report 17293403 (Version 1)
Quarter: 2020Q1

REPORT INFORMATION
  Report Type: Spontaneous
  Country: US (occurrence: US)
  Receive Date: 20200102
  Receipt Date: 20200102
  Transmission Date: 20200409
  Serious: No
  Sender: FDA-Public Use
  Company Number: None

PATIENT
  Age: 49 Year
  Sex: Female

DRUGS (1)
  1. DALFAMPRIDINE 10MG ER TAB [Suspect]
     Active Substance: DALFAMPRIDINE
     Indication: MULTIPLE SCLEROSIS
     Route: 048
     Dates: start: 201906

REACTIONS (5)
  - Fall [None]
  - Product substitution issue [None]
  - Condition aggravated [None]
  - Drug ineffective [None]
  - Balance disorder [None]

NARRATIVE: CASE EVENT DATE: 20190630
